FAERS Safety Report 21046594 (Version 1)
Quarter: 2022Q3

REPORT INFORMATION
  Report Type: Report from Study
  Country: BR (occurrence: BR)
  Receive Date: 20220706
  Receipt Date: 20220706
  Transmission Date: 20221027
  Serious: Yes (Hospitalization)
  Sender: FDA-Public Use
  Company Number: BR-JNJFOC-20220661313

PATIENT
  Age: 14 Year
  Sex: Female
  Weight: 31 kg

DRUGS (2)
  1. REMICADE [Suspect]
     Active Substance: INFLIXIMAB
     Indication: Crohn^s disease
     Dosage: 4 VIALS
     Route: 041
     Dates: start: 20160531
  2. REMICADE [Suspect]
     Active Substance: INFLIXIMAB
     Dosage: 5 VIALS
     Route: 041

REACTIONS (4)
  - Crohn^s disease [Recovering/Resolving]
  - Colitis [Unknown]
  - Inappropriate schedule of product administration [Unknown]
  - Off label use [Unknown]

NARRATIVE: CASE EVENT DATE: 20220619
